FAERS Safety Report 6362350-1 (Version None)
Quarter: 2009Q3

REPORT INFORMATION
  Report Type: 
  Country: None (occurrence: None)
  Receive Date: 20090918
  Receipt Date: 20090608
  Transmission Date: 20100115
  Serious: No
  Sender: FDA-Public Use
  Company Number: US-ABBOTT-09P-163-0574720-00

PATIENT
  Sex: Male
  Weight: 83.99 kg

DRUGS (9)
  1. HUMIRA [Suspect]
     Indication: PSORIASIS
     Dosage: DAY 1
     Dates: start: 20090501, end: 20090520
  2. HUMIRA [Suspect]
     Dosage: DAY 8
     Dates: start: 20090614
  3. SUDAFED 12 HOUR [Concomitant]
     Indication: DRUG USE FOR UNKNOWN INDICATION
     Dosage: ONE, DAILY OR TWICE DAILY AS NEEDED
     Route: 048
  4. ALLERGY [Concomitant]
     Indication: DRUG USE FOR UNKNOWN INDICATION
  5. ALLEGRA [Concomitant]
     Indication: DRUG USE FOR UNKNOWN INDICATION
     Route: 048
  6. MUCCINEX [Concomitant]
     Indication: DRUG USE FOR UNKNOWN INDICATION
     Dosage: DAILY
     Route: 048
  7. NASALCORT [Concomitant]
     Indication: DRUG USE FOR UNKNOWN INDICATION
     Dosage: NOT REPORTED
  8. OTHER UNKNOWN NASAL SPRAYS [Concomitant]
     Indication: DRUG USE FOR UNKNOWN INDICATION
     Dosage: NOT REPORTED
  9. UNKNOWN CHOLESTEROL MEDICATION [Concomitant]
     Indication: DRUG USE FOR UNKNOWN INDICATION
     Dosage: DAILY
     Route: 048

REACTIONS (5)
  - COUGH [None]
  - DRUG DOSE OMISSION [None]
  - NASAL CONGESTION [None]
  - OROPHARYNGEAL PAIN [None]
  - SINUSITIS [None]
